FAERS Safety Report 8099518-2 (Version None)
Quarter: 2012Q1

REPORT INFORMATION
  Report Type: 
  Country: None (occurrence: None)
  Receive Date: 20120129
  Receipt Date: 20110926
  Transmission Date: 20120608
  Serious: No
  Sender: FDA-Public Use
  Company Number: US-ABBOTT-11P-163-0858089-00

PATIENT
  Sex: Female

DRUGS (3)
  1. HUMIRA [Suspect]
     Indication: PSORIATIC ARTHROPATHY
     Dates: start: 20100101
  2. UNKNOWN BIRTH CONTROL [Concomitant]
     Indication: CONTRACEPTION
  3. FOLIC ACID [Concomitant]
     Indication: PSORIATIC ARTHROPATHY

REACTIONS (1)
  - INJECTION SITE HAEMATOMA [None]
